FAERS Safety Report 7528776-5 (Version None)
Quarter: 2011Q2

REPORT INFORMATION
  Report Type: 
  Country: None (occurrence: None)
  Receive Date: 20110607
  Receipt Date: 20100415
  Transmission Date: 20111010
  Serious: No
  Sender: FDA-Public Use
  Company Number: US-ASTRAZENECA-2010SE19033

PATIENT
  Sex: Female

DRUGS (1)
  1. PRILOSEC OTC [Suspect]
     Indication: ULCER
     Route: 048
     Dates: start: 20070101

REACTIONS (8)
  - HAEMATEMESIS [None]
  - RENAL IMPAIRMENT [None]
  - INCORRECT DRUG ADMINISTRATION DURATION [None]
  - CONDITION AGGRAVATED [None]
  - ABDOMINAL PAIN UPPER [None]
  - ABDOMINAL DISTENSION [None]
  - GASTROINTESTINAL HYPOMOTILITY [None]
  - ABDOMINAL PAIN [None]
